FAERS Safety Report 11025767 (Version 1)
Quarter: 2015Q2

REPORT INFORMATION
  Report Type: Spontaneous
  Country: RO (occurrence: RO)
  Receive Date: 20150414
  Receipt Date: 20150414
  Transmission Date: 20150821
  Serious: Yes (Hospitalization)
  Sender: FDA-Public Use
  Company Number: RO-SA-2015SA043955

PATIENT
  Age: 66 Year
  Sex: Female

DRUGS (2)
  1. HEPARIN [Concomitant]
     Active Substance: HEPARIN SODIUM
  2. CLEXANE [Suspect]
     Active Substance: ENOXAPARIN SODIUM
     Indication: ANTICOAGULANT THERAPY
     Route: 065

REACTIONS (8)
  - Hyperaemia [Recovering/Resolving]
  - Cardiac failure chronic [Recovering/Resolving]
  - Dyspnoea [Recovering/Resolving]
  - Blood pressure diastolic decreased [Recovering/Resolving]
  - Anaemia [Unknown]
  - Pleural fibrosis [Recovering/Resolving]
  - Haemothorax [Recovering/Resolving]
  - Mediastinal shift [Recovered/Resolved]
